FAERS Safety Report 15572719 (Version 3)
Quarter: 2019Q2

REPORT INFORMATION
  Report Type: Report from Study
  Country: CO (occurrence: CO)
  Receive Date: 20181031
  Receipt Date: 20190430
  Transmission Date: 20190711
  Serious: Yes (Hospitalization, Other)
  Sender: FDA-Public Use
  Company Number: PHHY2017CO168983

PATIENT
  Age: 60 Year
  Sex: Female
  Weight: 64 kg

DRUGS (2)
  1. EXEMESTANE. [Concomitant]
     Active Substance: EXEMESTANE
     Indication: PRODUCT USED FOR UNKNOWN INDICATION
     Route: 065
  2. AFINITOR [Suspect]
     Active Substance: EVEROLIMUS
     Indication: BREAST CANCER
     Dosage: 10 MG, QD
     Route: 048
     Dates: start: 20171005

REACTIONS (27)
  - Synovial cyst [Recovering/Resolving]
  - Depressed mood [Unknown]
  - Nausea [Unknown]
  - Decreased immune responsiveness [Unknown]
  - Viral infection [Unknown]
  - Cough [Unknown]
  - Abdominal pain upper [Unknown]
  - Pericardial effusion [Unknown]
  - Sneezing [Unknown]
  - Immunology test abnormal [Unknown]
  - Arthralgia [Unknown]
  - Cardiac disorder [Unknown]
  - Malaise [Unknown]
  - Dizziness [Unknown]
  - Pain in extremity [Unknown]
  - Throat irritation [Unknown]
  - Pain [Unknown]
  - Weight decreased [Unknown]
  - Headache [Unknown]
  - Discomfort [Unknown]
  - Influenza [Unknown]
  - Rhinorrhoea [Unknown]
  - Peripheral swelling [Recovering/Resolving]
  - Stomatitis [Unknown]
  - Hepatomegaly [Unknown]
  - Adjustment disorder [Unknown]
  - Asthenia [Unknown]

NARRATIVE: CASE EVENT DATE: 20171214
